FAERS Safety Report 10798037 (Version 1)
Quarter: 2015Q1

REPORT INFORMATION
  Report Type: Spontaneous
  Country: US (occurrence: US)
  Receive Date: 20150216
  Receipt Date: 20150216
  Transmission Date: 20150721
  Serious: No
  Sender: FDA-Public Use
  Company Number: US-PFIZER INC-2015056662

PATIENT
  Sex: Male

DRUGS (4)
  1. AMPHOTERICIN B. [Suspect]
     Active Substance: AMPHOTERICIN B
     Indication: PHAEHYPHOMYCOSIS
     Dosage: UNK
  2. AMPHOTERICIN B. [Suspect]
     Active Substance: AMPHOTERICIN B
     Indication: FUNGAL ABSCESS CENTRAL NERVOUS SYSTEM
  3. VORICONAZOLE. [Suspect]
     Active Substance: VORICONAZOLE
     Indication: PHAEHYPHOMYCOSIS
     Dosage: UNK
  4. VORICONAZOLE. [Suspect]
     Active Substance: VORICONAZOLE
     Indication: FUNGAL ABSCESS CENTRAL NERVOUS SYSTEM

REACTIONS (1)
  - Drug ineffective for unapproved indication [Unknown]
